FAERS Safety Report 4318387-7 (Version None)
Quarter: 2004Q1

REPORT INFORMATION
  Report Type: 
  Country: None (occurrence: None)
  Receive Date: 20040315
  Receipt Date: 20040301
  Transmission Date: 20041129
  Serious: Yes (Death, Hospitalization)
  Sender: FDA-Public Use
  Company Number: NSADSS2002007255

PATIENT
  Age: 58 Year
  Sex: Male

DRUGS (13)
  1. INFLIXIMAB, RECOMBINAT [Suspect]
     Indication: RHEUMATOID ARTHRITIS
     Dosage: 10 MG/KG, 1 IN 1 AS NECESSARY, INTRAVENOUS
     Route: 042
     Dates: start: 20011206, end: 20011206
  2. INFLIXIMAB, RECOMBINAT [Suspect]
     Indication: RHEUMATOID ARTHRITIS
     Dosage: 10 MG/KG, 1 IN 1 AS NECESSARY, INTRAVENOUS
     Route: 042
     Dates: start: 20011220, end: 20011220
  3. INFLIXIMAB, RECOMBINAT [Suspect]
     Indication: RHEUMATOID ARTHRITIS
     Dosage: 10 MG/KG, 1 IN 1 AS NECESSARY, INTRAVENOUS
     Route: 042
     Dates: start: 20020117, end: 20020117
  4. CLEXANE HEPARIN-FRACTION, SODIUM SALT [Concomitant]
  5. DUOVENT (DUOVENT) [Concomitant]
  6. AUGMENTIN [Concomitant]
  7. BICLAR (CLARITHROMYCIN) [Concomitant]
  8. LEDERTHREXATE (FOLINIC ACID) [Concomitant]
  9. FOLIC ACID [Concomitant]
  10. MEDROL [Concomitant]
  11. CELEBREX [Concomitant]
  12. ACETAMINOPHEN [Concomitant]
  13. LOGASTRIC (OMEPRAZOLE) [Concomitant]

REACTIONS (6)
  - CHILLS [None]
  - LUNG SQUAMOUS CELL CARCINOMA STAGE UNSPECIFIED [None]
  - METASTASES TO LUNG [None]
  - NAUSEA [None]
  - PHARYNGOLARYNGEAL PAIN [None]
  - PYREXIA [None]
